FAERS Safety Report 8521383-7 (Version None)
Quarter: 2012Q3

REPORT INFORMATION
  Report Type: 
  Country: None (occurrence: None)
  Receive Date: 20120719
  Receipt Date: 20110609
  Transmission Date: 20120928
  Serious: No
  Sender: FDA-Public Use
  Company Number: US-BRISTOL-MYERS SQUIBB COMPANY-15818537

PATIENT
  Age: 7 Decade
  Sex: Female

DRUGS (1)
  1. SPRYCEL [Suspect]
     Dosage: 1DF: 1DOSE OF SPRYCEL

REACTIONS (4)
  - FEELING ABNORMAL [None]
  - HEADACHE [None]
  - SWELLING [None]
  - RASH [None]
